FAERS Safety Report 25690433 (Version 1)
Quarter: 2025Q3

REPORT INFORMATION
  Report Type: Spontaneous
  Country: GB (occurrence: GB)
  Receive Date: 20250818
  Receipt Date: 20250818
  Transmission Date: 20251021
  Serious: Yes (Other)
  Sender: MYLAN
  Company Number: None

PATIENT
  Sex: Female

DRUGS (1)
  1. XALATAN [Suspect]
     Active Substance: LATANOPROST
     Indication: Ocular hypertension
     Dosage: 50 MILLIGRAM, PM (50 MG ONCE A DAY AT NIGHT)
     Dates: start: 20250606

REACTIONS (10)
  - Asthma [Recovering/Resolving]
  - Neck pain [Recovered/Resolved with Sequelae]
  - Sinusitis [Recovered/Resolved with Sequelae]
  - Migraine [Recovering/Resolving]
  - Nightmare [Recovering/Resolving]
  - Hypersensitivity [Recovered/Resolved with Sequelae]
  - Vision blurred [Not Recovered/Not Resolved]
  - Eye pain [Not Recovered/Not Resolved]
  - Eye irritation [Recovering/Resolving]
  - Foreign body sensation in eyes [Recovering/Resolving]
